FAERS Safety Report 6625623-0 (Version None)
Quarter: 2010Q1

REPORT INFORMATION
  Report Type: 
  Country: None (occurrence: None)
  Receive Date: 20100305
  Receipt Date: 20100224
  Transmission Date: 20100710
  Serious: Yes (Hospitalization, Other)
  Sender: FDA-Public Use
  Company Number: DSU-2010-00791

PATIENT
  Age: 63 Year
  Sex: Male
  Weight: 108.8633 kg

DRUGS (4)
  1. AZOR [Suspect]
     Indication: HYPERTENSION
     Dosage: 10/20 MG (QD), PER ORAL
     Route: 048
     Dates: start: 20080101
  2. BYSTOLIC [Concomitant]
  3. CRESTOR [Concomitant]
  4. ASPIRIN (ACETYLSALICYLIC ACID)(81 MILLIGRAM)(ACETYLSALICYLIC ACID) [Concomitant]

REACTIONS (2)
  - NEPHROLITHIASIS [None]
  - RENAL CANCER [None]
